FAERS Safety Report 7769688-1 (Version None)
Quarter: 2011Q3

REPORT INFORMATION
  Report Type: 
  Country: None (occurrence: None)
  Receive Date: 20110922
  Receipt Date: 20110720
  Transmission Date: 20111222
  Serious: Yes (Other)
  Sender: FDA-Public Use
  Company Number: US-ASTRAZENECA-2008UW08102

PATIENT
  Age: 410 Month
  Sex: Female
  Weight: 107.5 kg

DRUGS (6)
  1. TRICOR [Concomitant]
     Dates: start: 20051004
  2. PROPRANOLOL [Concomitant]
  3. ZYPREXA [Concomitant]
     Dates: start: 20040101
  4. ELAVIL [Concomitant]
     Dates: start: 20060101
  5. PAXIL [Concomitant]
     Dates: start: 20060101
  6. SEROQUEL [Suspect]
     Indication: DEPRESSION
     Dosage: 200MG, 300MG, 600MG
     Route: 048
     Dates: start: 20051004, end: 20060301

REACTIONS (11)
  - NEPHROLITHIASIS [None]
  - PANCREATITIS [None]
  - TYPE 2 DIABETES MELLITUS [None]
  - CHEST PAIN [None]
  - HYPERGLYCAEMIA [None]
  - FIBROMYALGIA [None]
  - HYPERTENSION [None]
  - HEART RATE IRREGULAR [None]
  - CARDIAC DISORDER [None]
  - BLOOD URINE PRESENT [None]
  - URINARY TRACT INFECTION [None]
